FAERS Safety Report 8011679-X (Version None)
Quarter: 2011Q4

REPORT INFORMATION
  Report Type: 
  Country: None (occurrence: None)
  Receive Date: 20111228
  Receipt Date: 20111214
  Transmission Date: 20120403
  Serious: Yes (Hospitalization)
  Sender: FDA-Public Use
  Company Number: BE-GLAXOSMITHKLINE-B0766964A

PATIENT
  Sex: Female

DRUGS (8)
  1. ADRIAMYCIN PFS [Suspect]
     Indication: CHRONIC LYMPHOCYTIC LEUKAEMIA
     Dosage: 82.5MG EVERY 3 WEEKS
     Route: 042
     Dates: start: 20111013
  2. ZOVIRAX [Concomitant]
     Indication: ANTIVIRAL PROPHYLAXIS
     Dosage: 1200MG PER DAY
     Route: 048
     Dates: start: 20091124
  3. ONCOVIN [Suspect]
     Indication: CHRONIC LYMPHOCYTIC LEUKAEMIA
     Dosage: 2MG EVERY 3 WEEKS
     Route: 042
     Dates: start: 20111013
  4. EUSAPRIM [Concomitant]
     Indication: ANTIBIOTIC PROPHYLAXIS
     Dosage: 800MG THREE TIMES PER WEEK
     Route: 048
     Dates: start: 20091124
  5. CYCLOPHOSPHAMIDE [Suspect]
     Indication: CHRONIC LYMPHOCYTIC LEUKAEMIA
     Dosage: 1237MG EVERY 3 WEEKS
     Route: 042
     Dates: start: 20111013
  6. SOLU-MEDROL [Suspect]
     Indication: CHRONIC LYMPHOCYTIC LEUKAEMIA
     Dosage: 80MG EVERY 3 WEEKS
     Route: 042
     Dates: start: 20111013
  7. VFEND [Concomitant]
     Indication: ANTIFUNGAL PROPHYLAXIS
     Dosage: 200MG PER DAY
     Route: 048
     Dates: start: 20100624
  8. OFATUMUMAB [Suspect]
     Indication: CHRONIC LYMPHOCYTIC LEUKAEMIA
     Route: 042
     Dates: start: 20111013

REACTIONS (1)
  - SEPSIS [None]
